FAERS Safety Report 20978923 (Version 1)
Quarter: 2022Q2

REPORT INFORMATION
  Report Type: Report from Study
  Country: CN (occurrence: CN)
  Receive Date: 20220619
  Receipt Date: 20220619
  Transmission Date: 20220721
  Serious: Yes (Hospitalization)
  Sender: FDA-Public Use
  Company Number: CN-TEVA-2022-CN-2046844

PATIENT
  Age: 47 Year
  Sex: Male

DRUGS (11)
  1. BENDAMUSTINE [Suspect]
     Active Substance: BENDAMUSTINE
     Indication: Diffuse large B-cell lymphoma
     Dosage: 90 MG/M2 DAILY; START DATE OF MOST RECENT DOSE OF STUDY DRUG PRIOR TO SAE: 20/FEB/2021 (177.5 MG,1 I
     Route: 042
     Dates: start: 20201111
  2. POLATUZUMAB VEDOTIN [Suspect]
     Active Substance: POLATUZUMAB VEDOTIN
     Indication: Diffuse large B-cell lymphoma
     Dosage: .0857 MG/KG DAILY;
     Route: 042
     Dates: start: 20201111
  3. RITUXIMAB [Suspect]
     Active Substance: RITUXIMAB
     Indication: Diffuse large B-cell lymphoma
     Dosage: 375 MG/M2 DAILY; START DATE OF MOST RECENT DOSE OF STUDY DRUG PRIOR TO SAE: 19/FEB/2021 (740MG,1 IN
     Route: 041
     Dates: start: 20201110
  4. LOSARTAN POTASSIUM AND HYDROCHLOROTHIAZIDE [Concomitant]
     Active Substance: HYDROCHLOROTHIAZIDE\LOSARTAN POTASSIUM
     Indication: Hypertension
     Route: 065
     Dates: start: 201711
  5. AMLODIPINE BESYLATE [Concomitant]
     Active Substance: AMLODIPINE BESYLATE
     Indication: Hypertension
     Route: 065
     Dates: start: 201711
  6. ENTECAVIR [Concomitant]
     Active Substance: ENTECAVIR
     Route: 065
     Dates: end: 20191024
  7. SULFAMETHOXAZOLE [Concomitant]
     Active Substance: SULFAMETHOXAZOLE
     Route: 065
     Dates: start: 20201214
  8. SULFAMETHOXAZOLE [Concomitant]
     Active Substance: SULFAMETHOXAZOLE
     Route: 065
     Dates: start: 20210318, end: 20210326
  9. SULFAMETHOXAZOLE [Concomitant]
     Active Substance: SULFAMETHOXAZOLE
     Route: 065
     Dates: start: 20210402
  10. VALACYCLOVIR HYDROCHLORIDE [Concomitant]
     Active Substance: VALACYCLOVIR HYDROCHLORIDE
     Route: 065
     Dates: start: 20201214
  11. DEXTROSE [Concomitant]
     Active Substance: DEXTROSE
     Dosage: 19-FEB-2021 (1 DAY), 20-MAR-2021 - 25-MAR-2021 (6 DAYS) AND -MAR-2021 TO -MAR-2021 (1 DAY)
     Route: 042

REACTIONS (1)
  - Pneumonia [Unknown]

NARRATIVE: CASE EVENT DATE: 20210302
